FAERS Safety Report 8536234-4 (Version None)
Quarter: 2012Q3

REPORT INFORMATION
  Report Type: 
  Country: None (occurrence: None)
  Receive Date: 20120725
  Receipt Date: 20120718
  Transmission Date: 20120928
  Serious: No
  Sender: FDA-Public Use
  Company Number: US-PFIZER INC-2012174844

PATIENT
  Sex: Male
  Weight: 70.295 kg

DRUGS (1)
  1. VIAGRA [Suspect]
     Indication: ERECTILE DYSFUNCTION
     Dosage: ONE OR TWO TABLETS OF 100 MG DAILY
     Route: 048
     Dates: start: 20120301

REACTIONS (1)
  - PENILE PAIN [None]
